FAERS Safety Report 5509872-0 (Version None)
Quarter: 2007Q4

REPORT INFORMATION
  Report Type: 
  Country: None (occurrence: None)
  Receive Date: 20071107
  Receipt Date: 20071107
  Transmission Date: 20080405
  Serious: Yes (Hospitalization)
  Sender: FDA-Public Use
  Company Number: None

PATIENT
  Sex: Female
  Weight: 56.36 kg

DRUGS (2)
  1. CYCLOPHOSPHAMIDE [Suspect]
     Dosage: 950 MG
  2. DOXORUBICIN HYDROCHLORIDE [Suspect]
     Dosage: 95 MG

REACTIONS (4)
  - DYSGEUSIA [None]
  - FATIGUE [None]
  - NEUTROPHIL COUNT ABNORMAL [None]
  - REFUSAL OF TREATMENT BY PATIENT [None]
